FAERS Safety Report 6225412-5 (Version None)
Quarter: 2009Q2

REPORT INFORMATION
  Report Type: 
  Country: None (occurrence: None)
  Receive Date: 20090612
  Receipt Date: 20090429
  Transmission Date: 20091009
  Serious: No
  Sender: FDA-Public Use
  Company Number: US-ABBOTT-09P-163-0568836-00

PATIENT
  Sex: Female
  Weight: 71.732 kg

DRUGS (7)
  1. HUMIRA [Suspect]
     Indication: CROHN'S DISEASE
     Dates: start: 20070801
  2. HUMIRA [Suspect]
     Dates: start: 20090413
  3. DIFLUCAN [Concomitant]
     Indication: DRUG USE FOR UNKNOWN INDICATION
  4. ENTOCORT EC [Concomitant]
     Indication: DRUG USE FOR UNKNOWN INDICATION
  5. COLAZAL [Concomitant]
     Indication: DRUG USE FOR UNKNOWN INDICATION
  6. VITAMIN D [Concomitant]
     Indication: DRUG USE FOR UNKNOWN INDICATION
  7. IRON [Concomitant]
     Indication: DRUG USE FOR UNKNOWN INDICATION
     Dosage: PILLS

REACTIONS (7)
  - CROHN'S DISEASE [None]
  - DRUG INEFFECTIVE [None]
  - ERYTHEMA [None]
  - FUNGAL INFECTION [None]
  - PAIN [None]
  - SKIN ULCER [None]
  - VULVOVAGINAL PRURITUS [None]
